FAERS Safety Report 5675645-1 (Version None)
Quarter: 2008Q1

REPORT INFORMATION
  Report Type: 
  Country: None (occurrence: None)
  Receive Date: 20080321
  Receipt Date: 20080318
  Transmission Date: 20080703
  Serious: Yes (Hospitalization)
  Sender: FDA-Public Use
  Company Number: CZ-ABBOTT-07P-217-0423153-00

PATIENT
  Sex: Female

DRUGS (15)
  1. HUMIRA [Suspect]
     Indication: RHEUMATOID ARTHRITIS
     Route: 058
     Dates: start: 20070329, end: 20070829
  2. METHOTREXATE [Concomitant]
     Indication: RHEUMATOID ARTHRITIS
     Route: 048
     Dates: start: 20020101, end: 20070901
  3. FOLIC ACID [Concomitant]
     Indication: RHEUMATOID ARTHRITIS
     Route: 048
  4. PREDNISONE TAB [Concomitant]
     Indication: RHEUMATOID ARTHRITIS
     Route: 048
  5. UDRAMIL [Concomitant]
     Indication: HYPERTENSION
     Route: 048
  6. ALENDRONATE SODIUM [Concomitant]
     Indication: OSTEOPOROSIS
     Route: 048
  7. OMEPRAZOLE [Concomitant]
     Indication: PROPHYLAXIS AGAINST GASTROINTESTINAL ULCER
     Route: 048
  8. DICLOFENAC SR [Concomitant]
     Indication: RHEUMATOID ARTHRITIS
     Route: 048
  9. CALTRATE PLUS [Concomitant]
     Indication: OSTEOPOROSIS
     Route: 048
  10. ERGOCALCIFEROL [Concomitant]
     Indication: OSTEOPOROSIS
     Route: 030
  11. PRITOR [Concomitant]
     Indication: OSTEOPOROSIS
     Route: 048
  12. PROTIFAR [Concomitant]
     Indication: DRUG USE FOR UNKNOWN INDICATION
  13. SULFASALAZINE [Concomitant]
     Indication: DRUG USE FOR UNKNOWN INDICATION
     Dates: start: 20071001
  14. PROBIOFLORA/LEPICOL [Concomitant]
     Indication: DRUG USE FOR UNKNOWN INDICATION
  15. CALCIUM CARBONATE [Concomitant]
     Indication: DRUG USE FOR UNKNOWN INDICATION

REACTIONS (22)
  - ASCITES [None]
  - CHILLS [None]
  - CITROBACTER INFECTION [None]
  - COLITIS [None]
  - DIVERTICULITIS [None]
  - ECZEMA [None]
  - ERYTHEMA [None]
  - ESCHERICHIA INFECTION [None]
  - FATIGUE [None]
  - GASTROINTESTINAL DISORDER [None]
  - HYPOALBUMINAEMIA [None]
  - HYPOKALAEMIA [None]
  - HYPONATRAEMIA [None]
  - MALAISE [None]
  - NAUSEA [None]
  - OEDEMA PERIPHERAL [None]
  - ORAL INTAKE REDUCED [None]
  - PLEURAL EFFUSION [None]
  - PSEUDOMEMBRANOUS COLITIS [None]
  - RENAL CYST [None]
  - URINARY TRACT INFECTION [None]
  - WEIGHT DECREASED [None]
